FAERS Safety Report 24645929 (Version 1)
Quarter: 2024Q4

REPORT INFORMATION
  Report Type: Spontaneous
  Country: BR (occurrence: BR)
  Receive Date: 20241121
  Receipt Date: 20241121
  Transmission Date: 20250114
  Serious: Yes (Death)
  Sender: NOVITIUM PHARMA
  Company Number: BR-NOVITIUMPHARMA-2024BRNVP02602

PATIENT
  Age: 73 Year
  Sex: Male

DRUGS (4)
  1. PREDNISONE [Suspect]
     Active Substance: PREDNISONE
     Indication: Chronic lymphocytic leukaemia
  2. CYCLOPHOSPHAMIDE [Concomitant]
     Active Substance: CYCLOPHOSPHAMIDE
     Indication: Chronic lymphocytic leukaemia
  3. VINCRISTINE [Concomitant]
     Active Substance: VINCRISTINE
     Indication: Chronic lymphocytic leukaemia
  4. RITUXIMAB [Concomitant]
     Active Substance: RITUXIMAB
     Indication: Chronic lymphocytic leukaemia

REACTIONS (1)
  - Infection [Fatal]
